FAERS Safety Report 23767461 (Version 1)
Quarter: 2024Q2

REPORT INFORMATION
  Report Type: Spontaneous
  Country: US (occurrence: US)
  Receive Date: 20240422
  Receipt Date: 20240422
  Transmission Date: 20240716
  Serious: No
  Sender: FDA-Public Use
  Company Number: US-ABBVIE-5728686

PATIENT
  Age: 70 Year
  Sex: Female

DRUGS (1)
  1. DALVANCE [Suspect]
     Active Substance: DALBAVANCIN
     Indication: Skin infection
     Dosage: FORM STRENGTH 500 MG
     Route: 065
     Dates: start: 20240418, end: 20240418

REACTIONS (3)
  - Muscle spasms [Unknown]
  - Nausea [Unknown]
  - Malaise [Unknown]

NARRATIVE: CASE EVENT DATE: 20240418
